FAERS Safety Report 6761807-9 (Version None)
Quarter: 2010Q2

REPORT INFORMATION
  Report Type: 
  Country: None (occurrence: None)
  Receive Date: 20100607
  Receipt Date: 20100526
  Transmission Date: 20101027
  Serious: Yes (Hospitalization, Other)
  Sender: FDA-Public Use
  Company Number: 2010SP030554

PATIENT
  Age: 55 Year
  Sex: Female

DRUGS (7)
  1. MIRALAX [Suspect]
     Indication: COLONOSCOPY
     Dosage: PO
     Route: 048
  2. COREG CR [Suspect]
     Indication: HYPERTENSION
     Dosage: 40 MG;QD;PO
     Route: 048
     Dates: start: 20081101
  3. DULCOLAX [Suspect]
     Indication: COLONOSCOPY
     Dates: start: 20100422
  4. CELEXA [Suspect]
     Indication: COLONOSCOPY
  5. IRBESARTAN [Concomitant]
  6. ASPIRIN [Concomitant]
  7. MAGNESIUM CITRATE [Concomitant]

REACTIONS (3)
  - BLOOD PRESSURE SYSTOLIC INCREASED [None]
  - DIZZINESS [None]
  - HYPONATRAEMIA [None]
